FAERS Safety Report 5001122-7 (Version None)
Quarter: 2006Q2

REPORT INFORMATION
  Report Type: 
  Country: None (occurrence: None)
  Receive Date: 20060512
  Receipt Date: 20060503
  Transmission Date: 20061013
  Serious: Yes (Hospitalization)
  Sender: FDA-Public Use
  Company Number: 2006CG00789

PATIENT
  Age: 75 Year
  Sex: Female

DRUGS (8)
  1. MOPRAL [Suspect]
     Route: 048
  2. TERCIAN [Suspect]
     Route: 048
  3. IMOVANE [Suspect]
  4. ZYPREXA [Suspect]
     Route: 048
  5. TAREG [Suspect]
     Route: 048
  6. SEROPLEX [Suspect]
     Route: 048
  7. DICETEL [Suspect]
  8. ESBERIVEN [Suspect]

REACTIONS (2)
  - GENERAL PHYSICAL HEALTH DETERIORATION [None]
  - RHABDOMYOLYSIS [None]
